FAERS Safety Report 8947555 (Version 1)
Quarter: 2012Q4

REPORT INFORMATION
  Report Type: 
  Country: US (occurrence: US)
  Receive Date: 20121204
  Receipt Date: 20121204
  Transmission Date: 20130627
  Serious: No
  Sender: FDA-Public Use
  Company Number: US-ASTRAZENECA-2012SE87016

PATIENT
  Age: 73 Year
  Sex: Male
  Weight: 77.1 kg

DRUGS (6)
  1. NEXIUM [Suspect]
     Indication: GASTROOESOPHAGEAL REFLUX DISEASE
     Route: 048
     Dates: start: 20121115
  2. OMEPRAZOLE [Suspect]
     Route: 048
     Dates: start: 201206, end: 201211
  3. LISINOPRIL HCTZ [Suspect]
     Route: 048
     Dates: start: 2007
  4. ASPIRIN [Concomitant]
  5. VITAMINS [Concomitant]
  6. SYNTHROID [Concomitant]

REACTIONS (3)
  - Diarrhoea [Not Recovered/Not Resolved]
  - Proctalgia [Not Recovered/Not Resolved]
  - Drug ineffective [Unknown]
